FAERS Safety Report 6829877-7 (Version None)
Quarter: 2010Q3

REPORT INFORMATION
  Report Type: 
  Country: None (occurrence: None)
  Receive Date: 20100710
  Receipt Date: 20100629
  Transmission Date: 20110219
  Serious: No
  Sender: FDA-Public Use
  Company Number: US-JNJFOC-20100604626

PATIENT
  Sex: Female

DRUGS (8)
  1. FENTANYL CITRATE [Suspect]
     Indication: NERVE INJURY
     Route: 062
  2. FENTANYL CITRATE [Suspect]
     Indication: FIBROMYALGIA
     Route: 062
  3. FENTANYL CITRATE [Suspect]
     Indication: OSTEOARTHRITIS
     Route: 062
  4. FENTANYL CITRATE [Suspect]
     Indication: NEURALGIA
     Route: 062
  5. FENTANYL CITRATE [Suspect]
     Route: 062
  6. FENTANYL CITRATE [Suspect]
     Route: 062
  7. FENTANYL CITRATE [Suspect]
     Route: 062
  8. FENTANYL CITRATE [Suspect]
     Route: 062

REACTIONS (7)
  - APPLICATION SITE ERYTHEMA [None]
  - APPLICATION SITE IRRITATION [None]
  - APPLICATION SITE PAIN [None]
  - APPLICATION SITE PRURITUS [None]
  - DRUG ADMINISTERED AT INAPPROPRIATE SITE [None]
  - HYPERHIDROSIS [None]
  - WRONG TECHNIQUE IN DRUG USAGE PROCESS [None]
